FAERS Safety Report 7046163-3 (Version None)
Quarter: 2010Q4

REPORT INFORMATION
  Report Type: 
  Country: None (occurrence: None)
  Receive Date: 20101013
  Receipt Date: 20101013
  Transmission Date: 20110411
  Serious: Yes (Hospitalization)
  Sender: FDA-Public Use
  Company Number: None

PATIENT
  Sex: Male
  Weight: 119 kg

DRUGS (3)
  1. METHOTREXATE [Suspect]
     Dosage: 2200 MG
  2. PEG-L ASPARAGINASE (K-H) [Suspect]
     Dosage: 11000 MG
  3. VINCRISTINE SULFATE [Suspect]
     Dosage: 10 MG

REACTIONS (4)
  - DRUG TOXICITY [None]
  - FEBRILE NEUTROPENIA [None]
  - RENAL FAILURE ACUTE [None]
  - STOMATITIS [None]
